FAERS Safety Report 11370846 (Version 1)
Quarter: 2015Q3

REPORT INFORMATION
  Report Type: Spontaneous
  Country: US (occurrence: US)
  Receive Date: 20150812
  Receipt Date: 20150812
  Transmission Date: 20151125
  Serious: No
  Sender: FDA-Public Use
  Company Number: US-BAYER-2015-391728

PATIENT
  Age: 26 Year
  Sex: Female

DRUGS (1)
  1. BEYAZ [Suspect]
     Active Substance: DROSPIRENONE\ETHINYL ESTRADIOL\LEVOMEFOLATE CALCIUM
     Indication: OVARIAN CANCER
     Dosage: 20 MCG/24HR, CONT
     Route: 015
     Dates: start: 2010, end: 201501

REACTIONS (2)
  - Amenorrhoea [None]
  - Off label use [None]
